FAERS Safety Report 20123241 (Version 3)
Quarter: 2023Q1

REPORT INFORMATION
  Report Type: Report from Study
  Country: JP (occurrence: JP)
  Receive Date: 20211129
  Receipt Date: 20230220
  Transmission Date: 20230417
  Serious: Yes (Hospitalization)
  Sender: FDA-Public Use
  Company Number: JP-ACTELION-A-CH2019-193604

PATIENT
  Age: 40 Year
  Sex: Female
  Weight: 42.8 kg

DRUGS (65)
  1. UPTRAVI [Suspect]
     Active Substance: SELEXIPAG
     Indication: Pulmonary arterial hypertension
     Dosage: 0.2 MG, BID
     Route: 048
     Dates: start: 20180528, end: 20180604
  2. UPTRAVI [Suspect]
     Active Substance: SELEXIPAG
     Dosage: 0.1 MG, BID
     Route: 048
     Dates: start: 20180514
  3. UPTRAVI [Suspect]
     Active Substance: SELEXIPAG
     Dosage: 0.1 MG, BID
     Route: 048
     Dates: start: 20180820
  4. UPTRAVI [Suspect]
     Active Substance: SELEXIPAG
     Dosage: 0.2 MG, BID
     Route: 048
     Dates: start: 20180904
  5. UPTRAVI [Suspect]
     Active Substance: SELEXIPAG
     Dosage: 0.3 MG, BID
     Route: 048
     Dates: start: 20181001, end: 20181216
  6. UPTRAVI [Suspect]
     Active Substance: SELEXIPAG
     Dosage: 0.2 MG, BID
     Route: 048
     Dates: start: 20181217, end: 20190401
  7. UPTRAVI [Suspect]
     Active Substance: SELEXIPAG
     Dosage: 0.1 MG, BID
     Route: 048
     Dates: start: 20190402
  8. UPTRAVI [Suspect]
     Active Substance: SELEXIPAG
     Dosage: 0.2 MG, BID
     Route: 048
     Dates: start: 20210514
  9. UPTRAVI [Suspect]
     Active Substance: SELEXIPAG
     Route: 048
     Dates: start: 20180528, end: 20180603
  10. UPTRAVI [Suspect]
     Active Substance: SELEXIPAG
     Route: 048
     Dates: start: 20180810, end: 20180903
  11. UPTRAVI [Suspect]
     Active Substance: SELEXIPAG
     Route: 048
     Dates: start: 20180904
  12. UPTRAVI [Suspect]
     Active Substance: SELEXIPAG
     Route: 048
     Dates: start: 20181001
  13. UPTRAVI [Suspect]
     Active Substance: SELEXIPAG
     Route: 048
     Dates: start: 20190402
  14. TRACLEER [Concomitant]
     Active Substance: BOSENTAN
     Indication: Pulmonary arterial hypertension
     Dosage: 250 MG, QD
     Dates: start: 20180514
  15. TRACLEER [Concomitant]
     Active Substance: BOSENTAN
     Dosage: 250 MG, QD
     Dates: start: 20060209
  16. ADCIRCA [Concomitant]
     Active Substance: TADALAFIL
     Indication: Pulmonary arterial hypertension
     Dosage: 40 MG, QD
     Dates: start: 20180514
  17. ADCIRCA [Concomitant]
     Active Substance: TADALAFIL
     Dosage: 40 MG, QD
     Dates: start: 20130311
  18. FERROUS SULFATE [Concomitant]
     Active Substance: FERROUS SULFATE
     Indication: Iron deficiency anaemia
     Dosage: 2 DF, QD
     Dates: start: 20180514
  19. FERROUS SULFATE [Concomitant]
     Active Substance: FERROUS SULFATE
     Dosage: 2 DF, QD
     Dates: start: 20180312, end: 20180623
  20. FEBUXOSTAT [Concomitant]
     Active Substance: FEBUXOSTAT
     Indication: Hyperuricaemia
     Dosage: 20 MG, QD
     Dates: start: 20180514
  21. FEBUXOSTAT [Concomitant]
     Active Substance: FEBUXOSTAT
     Dosage: 30 MG, QD
     Dates: start: 20181112
  22. FEBUXOSTAT [Concomitant]
     Active Substance: FEBUXOSTAT
     Dosage: 20 MG, QD
     Dates: start: 20180416, end: 20180909
  23. FEBUXOSTAT [Concomitant]
     Active Substance: FEBUXOSTAT
     Dosage: 20 MG, QD
     Dates: start: 20180910
  24. ALLEGRA [Concomitant]
     Active Substance: FEXOFENADINE HYDROCHLORIDE
     Indication: Seasonal allergy
     Dosage: 120 MG, QD
     Dates: start: 20180514
  25. ALLEGRA [Concomitant]
     Active Substance: FEXOFENADINE HYDROCHLORIDE
     Dosage: 120 MG, QD
     Dates: start: 20180302, end: 20180617
  26. PIMOBENDAN [Concomitant]
     Active Substance: PIMOBENDAN
     Dosage: 5 MG, QD
     Dates: start: 20180514
  27. PIMOBENDAN [Concomitant]
     Active Substance: PIMOBENDAN
     Dosage: 5 MG, QD
     Dates: start: 20180327
  28. WARFARIN [Concomitant]
     Active Substance: WARFARIN
     Dosage: 1.75 MG, QD
     Dates: start: 20180514
  29. WARFARIN [Concomitant]
     Active Substance: WARFARIN
     Dosage: 1.75 MG, QD
     Dates: start: 20130304
  30. AMIODARONE [Concomitant]
     Active Substance: AMIODARONE
     Indication: Ventricular tachycardia
     Dosage: 100 MG, QD
     Dates: start: 20180514
  31. AMIODARONE [Concomitant]
     Active Substance: AMIODARONE
     Dosage: 100 MG, QD
     Dates: start: 20130314
  32. SAMSCA [Concomitant]
     Active Substance: TOLVAPTAN
     Dosage: 15 MG, QD
     Dates: start: 20180514
  33. SAMSCA [Concomitant]
     Active Substance: TOLVAPTAN
     Dosage: 15 MG, QD
     Dates: start: 20130307
  34. MIYA-BM [Concomitant]
     Active Substance: CLOSTRIDIUM BUTYRICUM SPORES STRAIN M-55
     Indication: Clostridium difficile colitis
     Dosage: 3 DF, QD
     Dates: start: 20180514, end: 20180518
  35. MIYA-BM [Concomitant]
     Active Substance: CLOSTRIDIUM BUTYRICUM SPORES STRAIN M-55
     Dosage: 3 DF, QD
     Dates: start: 20181112
  36. SPIRONOLACTONE [Concomitant]
     Active Substance: SPIRONOLACTONE
     Dosage: 75 MG, QD
     Dates: start: 20180514, end: 20180518
  37. SPIRONOLACTONE [Concomitant]
     Active Substance: SPIRONOLACTONE
     Dosage: 75 MG, QD
     Dates: start: 20181112
  38. SPIRONOLACTONE [Concomitant]
     Active Substance: SPIRONOLACTONE
     Dosage: 75 MG, QD
     Dates: start: 20061209
  39. POTASSIUM ASPARTATE [Concomitant]
     Active Substance: POTASSIUM ASPARTATE
     Indication: Hypokalaemia
     Dosage: 2700 MG, QD
     Dates: start: 20180514, end: 20180518
  40. POTASSIUM ASPARTATE [Concomitant]
     Active Substance: POTASSIUM ASPARTATE
     Dosage: 3600 MG, QD
     Dates: start: 20181119
  41. POTASSIUM ASPARTATE [Concomitant]
     Active Substance: POTASSIUM ASPARTATE
     Dosage: 2700 MG, QD
     Dates: start: 20181112, end: 20181119
  42. POTASSIUM ASPARTATE [Concomitant]
     Active Substance: POTASSIUM ASPARTATE
     Dates: start: 20170704
  43. TORSEMIDE [Concomitant]
     Active Substance: TORSEMIDE
     Dosage: 8 MG, QD
     Dates: start: 20180515, end: 20180518
  44. TORSEMIDE [Concomitant]
     Active Substance: TORSEMIDE
     Dates: start: 20170704
  45. NEXIUM [Concomitant]
     Active Substance: ESOMEPRAZOLE MAGNESIUM
     Indication: Clostridium difficile colitis
     Dosage: 20 MG, QD
     Dates: start: 20180515, end: 20180517
  46. NEXIUM [Concomitant]
     Active Substance: ESOMEPRAZOLE MAGNESIUM
     Dosage: 20 MG, QD
     Dates: start: 20181112
  47. NEXIUM [Concomitant]
     Active Substance: ESOMEPRAZOLE MAGNESIUM
     Dosage: 20 MG, QD
     Dates: start: 20180726
  48. LEVOTHYROXINE SODIUM [Concomitant]
     Active Substance: LEVOTHYROXINE SODIUM
     Indication: Hypothyroidism
     Dosage: 37.5 MCG, QD
     Dates: start: 20180515, end: 20180517
  49. LEVOTHYROXINE SODIUM [Concomitant]
     Active Substance: LEVOTHYROXINE SODIUM
     Dosage: 25 MCG, QD
     Dates: start: 20181112
  50. LEVOTHYROXINE SODIUM [Concomitant]
     Active Substance: LEVOTHYROXINE SODIUM
     Dosage: 25 MCG, QD
     Dates: start: 20130523
  51. LASIX [Concomitant]
     Active Substance: FUROSEMIDE
     Dosage: 40 MG, QD
     Dates: start: 20180515
  52. LASIX [Concomitant]
     Active Substance: FUROSEMIDE
     Dosage: 40 MG, QD
     Dates: start: 20061209
  53. ZOLPIDEM TARTRATE [Concomitant]
     Active Substance: ZOLPIDEM TARTRATE
     Indication: Insomnia
     Dosage: 10 MG, QD
     Dates: start: 20180514, end: 20190518
  54. ZOLPIDEM TARTRATE [Concomitant]
     Active Substance: ZOLPIDEM TARTRATE
     Dosage: 10 MG, QD
     Dates: start: 20181112
  55. ZOLPIDEM TARTRATE [Concomitant]
     Active Substance: ZOLPIDEM TARTRATE
     Dosage: 10 MG, QD
     Dates: start: 20170627
  56. ZOLPIDEM TARTRATE [Concomitant]
     Active Substance: ZOLPIDEM TARTRATE
     Dosage: 10 MG, QD
     Dates: start: 20171222
  57. TRAMCET [Concomitant]
     Active Substance: ACETAMINOPHEN\TRAMADOL
     Indication: Pain
     Dosage: UNK
     Dates: start: 20180514, end: 20180518
  58. TRAMCET [Concomitant]
     Active Substance: ACETAMINOPHEN\TRAMADOL
     Dosage: UNK
     Dates: start: 20181112
  59. TRAMCET [Concomitant]
     Active Substance: ACETAMINOPHEN\TRAMADOL
     Dates: start: 20180222
  60. TRICHLORMETHIAZIDE [Concomitant]
     Active Substance: TRICHLORMETHIAZIDE
     Dosage: 1 MG, QD
     Dates: start: 20180516
  61. TRICHLORMETHIAZIDE [Concomitant]
     Active Substance: TRICHLORMETHIAZIDE
     Dates: start: 20180410, end: 20180921
  62. TORSEMIDE [Concomitant]
     Active Substance: TORSEMIDE
     Dosage: 8 MG, QD
     Dates: start: 20181112
  63. TORSEMIDE [Concomitant]
     Active Substance: TORSEMIDE
     Dates: start: 20180914
  64. CALONAL [Concomitant]
     Active Substance: ACETAMINOPHEN
     Indication: Pain
     Dosage: UNK
     Dates: start: 20181112
  65. CALONAL [Concomitant]
     Active Substance: ACETAMINOPHEN
     Dates: start: 20180812

REACTIONS (5)
  - Diarrhoea [Not Recovered/Not Resolved]
  - Oedema [Recovered/Resolved]
  - Right ventricular failure [Recovered/Resolved]
  - Panic disorder [Recovered/Resolved]
  - Clostridium difficile colitis [Recovering/Resolving]

NARRATIVE: CASE EVENT DATE: 20180515
